FAERS Safety Report 6133794-8 (Version None)
Quarter: 2009Q1

REPORT INFORMATION
  Report Type: 
  Country: None (occurrence: None)
  Receive Date: 20090326
  Receipt Date: 20090318
  Transmission Date: 20090719
  Serious: Yes (Hospitalization)
  Sender: FDA-Public Use
  Company Number: US-PFIZER INC-2009157095

PATIENT
  Sex: Male
  Weight: 96 kg

DRUGS (2)
  1. SUTENT [Suspect]
     Indication: RENAL CELL CARCINOMA
     Dosage: 37.5 MG, 1X/DAY
     Route: 048
     Dates: start: 20080606, end: 20090212
  2. GEMCITABINE [Suspect]
     Indication: RENAL CELL CARCINOMA
     Dosage: 1000 MG/M2, UNK
     Dates: start: 20080606, end: 20090109

REACTIONS (3)
  - FATIGUE [None]
  - OEDEMA [None]
  - RENAL FAILURE ACUTE [None]
